FAERS Safety Report 12653947 (Version 2)
Quarter: 2016Q3

REPORT INFORMATION
  Report Type: Spontaneous
  Country: US (occurrence: US)
  Receive Date: 20160816
  Receipt Date: 20160817
  Transmission Date: 20161109
  Serious: Yes (Other)
  Sender: FDA-Public Use
  Company Number: US-ROCHE-1813873

PATIENT
  Sex: Female
  Weight: 50.39 kg

DRUGS (2)
  1. ESBRIET [Suspect]
     Active Substance: PIRFENIDONE
     Indication: IDIOPATHIC PULMONARY FIBROSIS
     Dosage: 3 PILLS, 3 TIMES A DAY
     Route: 065
  2. ESBRIET [Suspect]
     Active Substance: PIRFENIDONE
     Dosage: REDUCE TO 2 PILLS, 3 TIMES A DAY
     Route: 065

REACTIONS (3)
  - Contusion [Recovering/Resolving]
  - Dyspnoea [Recovering/Resolving]
  - Erythema [Unknown]
